FAERS Safety Report 6932546-6 (Version None)
Quarter: 2010Q3

REPORT INFORMATION
  Report Type: 
  Country: None (occurrence: None)
  Receive Date: 20100817
  Receipt Date: 20100806
  Transmission Date: 20110219
  Serious: Yes (Death)
  Sender: FDA-Public Use
  Company Number: 2010AC000487

PATIENT
  Sex: Female

DRUGS (1)
  1. DIGOXIN [Suspect]
     Dosage: UNKNOWN; PO
     Route: 048
     Dates: start: 20080221

REACTIONS (2)
  - MULTIPLE INJURIES [None]
  - UNEVALUABLE EVENT [None]
